FAERS Safety Report 13270821 (Version 6)
Quarter: 2018Q2

REPORT INFORMATION
  Report Type: Spontaneous
  Country: US (occurrence: US)
  Receive Date: 20170225
  Receipt Date: 20180416
  Transmission Date: 20180711
  Serious: Yes (Other)
  Sender: FDA-Public Use
  Company Number: PHEH2017US004705

PATIENT
  Sex: Female

DRUGS (1)
  1. PROMACTA [Suspect]
     Active Substance: ELTROMBOPAG OLAMINE
     Indication: ESSENTIAL THROMBOCYTHAEMIA
     Dosage: 50 MG, QD
     Route: 048
     Dates: start: 20170113

REACTIONS (12)
  - Nephrolithiasis [Unknown]
  - Rhinorrhoea [Unknown]
  - Abdominal pain [Unknown]
  - Concomitant disease aggravated [Unknown]
  - Muscle spasms [Unknown]
  - Cough [Unknown]
  - Swelling [Unknown]
  - Wolff-Parkinson-White syndrome [Unknown]
  - Insomnia [Unknown]
  - Weight increased [Not Recovered/Not Resolved]
  - Mitral valve prolapse [Unknown]
  - Liver function test abnormal [Unknown]
